FAERS Safety Report 5360174-5 (Version None)
Quarter: 2007Q2

REPORT INFORMATION
  Report Type: 
  Country: None (occurrence: None)
  Receive Date: 20070612
  Receipt Date: 20070601
  Transmission Date: 20071010
  Serious: No
  Sender: FDA-Public Use
  Company Number: COM # 07-107

PATIENT
  Age: 44 Year
  Sex: Male

DRUGS (1)
  1. PHENYTOIN SODIUM [Suspect]
     Dosage: 6 CAPSULES A DAY

REACTIONS (4)
  - ANTICONVULSANT DRUG LEVEL ABOVE THERAPEUTIC [None]
  - DIZZINESS [None]
  - DRUG TOXICITY [None]
  - LOSS OF CONSCIOUSNESS [None]
